FAERS Safety Report 19433284 (Version 1)
Quarter: 2021Q2

REPORT INFORMATION
  Report Type: Other
  Country: US (occurrence: US)
  Receive Date: 20210618
  Receipt Date: 20210618
  Transmission Date: 20210717
  Serious: No
  Sender: FDA-Public Use
  Company Number: US-ROCHE-2846758

PATIENT
  Age: 39 Year
  Sex: Male
  Weight: 97.61 kg

DRUGS (8)
  1. OCREVUS [Suspect]
     Active Substance: OCRELIZUMAB
     Indication: MULTIPLE SCLEROSIS
     Dosage: DOT: 27/JUL/2020, 10/AUG/2020
     Route: 042
     Dates: start: 20201120
  2. BENADRYL [Concomitant]
     Active Substance: DIPHENHYDRAMINE HYDROCHLORIDE
     Route: 042
  3. FAMOTIDINE. [Concomitant]
     Active Substance: FAMOTIDINE
     Route: 048
  4. OCREVUS [Suspect]
     Active Substance: OCRELIZUMAB
     Route: 042
     Dates: start: 20201110
  5. ACETAMINOPHEN. [Concomitant]
     Active Substance: ACETAMINOPHEN
     Route: 048
  6. METHYLPREDNISOLONE. [Concomitant]
     Active Substance: METHYLPREDNISOLONE
     Route: 042
  7. LISINOPRIL. [Concomitant]
     Active Substance: LISINOPRIL
     Route: 048
  8. ONDANSETRON [Concomitant]
     Active Substance: ONDANSETRON
     Route: 042

REACTIONS (11)
  - Gait disturbance [Unknown]
  - Hypoaesthesia [Unknown]
  - Initial insomnia [Unknown]
  - Myalgia [Unknown]
  - COVID-19 [Unknown]
  - Asthenia [Unknown]
  - Dizziness postural [Unknown]
  - Fatigue [Unknown]
  - Vision blurred [Unknown]
  - Hypertension [Unknown]
  - Migraine [Unknown]

NARRATIVE: CASE EVENT DATE: 20210121
